FAERS Safety Report 13960152 (Version 2)
Quarter: 2017Q4

REPORT INFORMATION
  Report Type: Spontaneous
  Country: JP (occurrence: JP)
  Receive Date: 20170912
  Receipt Date: 20171204
  Transmission Date: 20180320
  Serious: Yes (Hospitalization)
  Sender: FDA-Public Use
  Company Number: JP-VIFOR (INTERNATIONAL) INC.-VIT-2017-09351

PATIENT
  Age: 84 Year
  Sex: Female

DRUGS (10)
  1. LENDORMIN [Concomitant]
     Active Substance: BROTIZOLAM
     Route: 048
  2. TAKECAB [Concomitant]
     Active Substance: VONOPRAZAN FUMURATE
     Route: 048
     Dates: start: 20170301, end: 20170720
  3. MERISLON [Concomitant]
     Active Substance: BETAHISTINE MESILATE
     Route: 048
     Dates: start: 20170314, end: 20170520
  4. MIRCERA [Suspect]
     Active Substance: METHOXY POLYETHYLENE GLYCOL-EPOETIN BETA
     Dates: start: 201512
  5. NIFELANTERN CR [Concomitant]
     Active Substance: NIFEDIPINE
     Route: 048
  6. MIRCERA [Suspect]
     Active Substance: METHOXY POLYETHYLENE GLYCOL-EPOETIN BETA
     Indication: NEPHROGENIC ANAEMIA
     Route: 058
     Dates: start: 201511
  7. BAYASPIRIN [Concomitant]
     Active Substance: ASPIRIN
     Route: 048
  8. NAUZELIN [Concomitant]
     Active Substance: DOMPERIDONE
     Route: 048
     Dates: start: 20170314, end: 20170520
  9. LIVALO [Concomitant]
     Active Substance: PITAVASTATIN CALCIUM
     Route: 048
  10. ADETPHOS [Concomitant]
     Active Substance: ADENOSINE TRIPHOSPHATE
     Route: 048
     Dates: start: 20170314, end: 20170520

REACTIONS (7)
  - Syncope [Unknown]
  - Renal failure [Unknown]
  - Fall [Unknown]
  - Sinus node dysfunction [Recovered/Resolved]
  - Transient ischaemic attack [Unknown]
  - Haematoma [Unknown]
  - Bradycardia [Unknown]

NARRATIVE: CASE EVENT DATE: 20170606
